FAERS Safety Report 25535390 (Version 4)
Quarter: 2025Q3

REPORT INFORMATION
  Report Type: Spontaneous
  Country: GB (occurrence: GB)
  Receive Date: 20250709
  Receipt Date: 20250818
  Transmission Date: 20251020
  Serious: Yes (Death, Life-Threatening, Hospitalization, Other)
  Sender: GILEAD
  Company Number: GB-GILEAD-2025-0719889

PATIENT
  Age: 71 Year
  Sex: Male
  Weight: 83.9 kg

DRUGS (18)
  1. YESCARTA [Suspect]
     Active Substance: AXICABTAGENE CILOLEUCEL
     Indication: Diffuse large B-cell lymphoma
     Route: 042
     Dates: start: 20250623, end: 20250623
  2. EPINEPHRINE [Concomitant]
     Active Substance: EPINEPHRINE
     Route: 042
     Dates: start: 20250707
  3. PROPOFOL [Concomitant]
     Active Substance: PROPOFOL
     Indication: Sedation
     Route: 042
     Dates: start: 20250706
  4. ALFENTANIL [Concomitant]
     Active Substance: ALFENTANIL
     Indication: Sedation
     Route: 042
     Dates: start: 20250706
  5. MIDAZOLAM [Concomitant]
     Active Substance: MIDAZOLAM
     Indication: Sedation
     Route: 042
     Dates: start: 20250706
  6. ATRACURIUM [Concomitant]
     Active Substance: ATRACURIUM
     Indication: Muscle relaxant therapy
     Route: 042
     Dates: start: 20250706
  7. NOREPINEPHRINE BITARTRATE [Concomitant]
     Active Substance: NOREPINEPHRINE BITARTRATE
     Route: 042
     Dates: start: 20250706
  8. METARAMINOL [Concomitant]
     Active Substance: METARAMINOL
     Route: 042
     Dates: start: 20250706
  9. INSULIN PORK\INSULIN PURIFIED PORK [Concomitant]
     Active Substance: INSULIN PORK\INSULIN PURIFIED PORK
     Route: 042
     Dates: start: 20250707
  10. ACYCLOVIR [Concomitant]
     Active Substance: ACYCLOVIR
     Indication: Antiviral prophylaxis
     Route: 048
     Dates: start: 20250615
  11. FLUCONAZOLE [Concomitant]
     Active Substance: FLUCONAZOLE
     Indication: Antifungal prophylaxis
     Dosage: 400 MG, QD
     Route: 048
     Dates: start: 20250619
  12. ANAKINRA [Concomitant]
     Active Substance: ANAKINRA
     Indication: Immune effector cell-associated neurotoxicity syndrome
     Dosage: 200 MG, QD
     Route: 058
     Dates: start: 20250628, end: 20250706
  13. ALLOPURINOL [Concomitant]
     Active Substance: ALLOPURINOL
     Indication: Tumour lysis syndrome
     Dosage: 300 MG, QD
     Route: 048
     Dates: start: 20250626
  14. FILGRASTIM [Concomitant]
     Active Substance: FILGRASTIM
     Indication: Neutropenia
     Dosage: 300 UG, QD
     Route: 058
     Dates: start: 20250627
  15. LANSOPRAZOLE [Concomitant]
     Active Substance: LANSOPRAZOLE
     Indication: Stress ulcer
     Dosage: 30 MG, QD
     Route: 048
     Dates: start: 20250629
  16. AMLODIPINE [Concomitant]
     Active Substance: AMLODIPINE BESYLATE
     Indication: Hypertension
     Dosage: 10 MG, QD
     Dates: start: 20250703
  17. CYCLIZINE [Concomitant]
     Active Substance: CYCLIZINE
     Indication: Vomiting
     Dates: start: 20250701
  18. MORPHINE SULFATE [Concomitant]
     Active Substance: MORPHINE SULFATE
     Indication: Pain
     Route: 048
     Dates: start: 20250717

REACTIONS (5)
  - Death [Fatal]
  - Pneumonia [Fatal]
  - Respiratory failure [Fatal]
  - Pulmonary haemorrhage [Fatal]
  - Multiple organ dysfunction syndrome [Unknown]

NARRATIVE: CASE EVENT DATE: 20250706
